FAERS Safety Report 7213066-0 (Version None)
Quarter: 2011Q1

REPORT INFORMATION
  Report Type: 
  Country: None (occurrence: None)
  Receive Date: 20110106
  Receipt Date: 20101230
  Transmission Date: 20110831
  Serious: Yes (Hospitalization)
  Sender: FDA-Public Use
  Company Number: B0692325A

PATIENT
  Sex: Female
  Weight: 49.7 kg

DRUGS (3)
  1. TAXOL [Suspect]
     Indication: BREAST CANCER
     Dosage: 175MGM2 EVERY 3 WEEKS
     Route: 042
     Dates: start: 20101217
  2. LAPATINIB [Suspect]
     Indication: BREAST CANCER
     Dosage: 1250MG PER DAY
     Route: 048
     Dates: start: 20101217
  3. MYOCET [Suspect]
     Indication: BREAST CANCER
     Dosage: 60MGM2 EVERY 3 WEEKS
     Route: 042
     Dates: start: 20101217

REACTIONS (1)
  - FEBRILE NEUTROPENIA [None]
